FAERS Safety Report 11828774 (Version 2)
Quarter: 2015Q4

REPORT INFORMATION
  Report Type: Spontaneous
  Country: JP (occurrence: JP)
  Receive Date: 20151211
  Receipt Date: 20151228
  Transmission Date: 20160305
  Serious: Yes (Death, Hospitalization)
  Sender: FDA-Public Use
  Company Number: JP-SA-2015SA049902

PATIENT
  Age: 78 Year
  Sex: Male
  Weight: 58 kg

DRUGS (7)
  1. TAXOTERE [Suspect]
     Active Substance: DOCETAXEL
     Indication: PROSTATE CANCER
     Dosage: TAXOTERE 20 MG AND TAXOTERE 80 MG GIVEN AS 100 MG Q21D
     Route: 042
     Dates: start: 20140821, end: 20140821
  2. DEXART [Concomitant]
     Active Substance: DEXAMETHASONE SODIUM PHOSPHATE
     Dates: start: 20140721, end: 20140721
  3. CASODEX [Concomitant]
     Active Substance: BICALUTAMIDE
     Indication: PROSTATE CANCER
     Dates: start: 20130724, end: 20140831
  4. DEXART [Concomitant]
     Active Substance: DEXAMETHASONE SODIUM PHOSPHATE
     Dates: start: 20140707, end: 20140707
  5. TAXOTERE [Suspect]
     Active Substance: DOCETAXEL
     Indication: PROSTATE CANCER
     Dosage: TAXOTERE 20 MG AND TAXOTERE 80 MG GIVEN AS 100 MG Q21D
     Route: 042
     Dates: start: 20140707, end: 20140707
  6. DEXART [Concomitant]
     Active Substance: DEXAMETHASONE SODIUM PHOSPHATE
     Dates: start: 20140821, end: 20140821
  7. TAXOTERE [Suspect]
     Active Substance: DOCETAXEL
     Indication: PROSTATE CANCER
     Dosage: TAXOTERE 20 MG AND TAXOTERE 80 MG GIVEN AS 100 MG Q21D
     Route: 042
     Dates: start: 20140731, end: 20140731

REACTIONS (11)
  - Chest X-ray abnormal [Fatal]
  - Respiratory distress [Fatal]
  - Dyspnoea [Fatal]
  - Interstitial lung disease [Fatal]
  - Tachypnoea [Fatal]
  - Cell marker increased [Fatal]
  - Blood beta-D-glucan increased [Fatal]
  - White blood cell count increased [Fatal]
  - C-reactive protein increased [Fatal]
  - Pyrexia [Fatal]
  - Monocyte count increased [Fatal]

NARRATIVE: CASE EVENT DATE: 20140831
